FAERS Safety Report 5630406-4 (Version None)
Quarter: 2008Q1

REPORT INFORMATION
  Report Type: 
  Country: None (occurrence: None)
  Receive Date: 20080212
  Receipt Date: 20080204
  Transmission Date: 20080703
  Serious: Yes (Death, Other)
  Sender: FDA-Public Use
  Company Number: 163-21880-08020327

PATIENT
  Age: 42 Year
  Sex: Male

DRUGS (5)
  1. REVLIMID [Suspect]
     Indication: MULTIPLE MYELOMA
     Dosage: 25 MG, 1 IN 1 D, ORAL
     Route: 048
     Dates: start: 20070503, end: 20070713
  2. DEXAMETHASONE TAB [Suspect]
     Indication: DRUG USE FOR UNKNOWN INDICATION
     Dosage: 8 MG QD UNKNOWN; 8 MG BID UNKNOWN
  3. KADIAN [Concomitant]
  4. MS CONTIN [Concomitant]
  5. HEPARIN [Concomitant]

REACTIONS (6)
  - DISEASE PROGRESSION [None]
  - MULTIPLE MYELOMA [None]
  - NASOPHARYNGITIS [None]
  - PANCYTOPENIA [None]
  - PELVIC PAIN [None]
  - TREMOR [None]
